FAERS Safety Report 6581007 (Version 2)
Quarter: 2015Q3

REPORT INFORMATION
  Report Type: Spontaneous
  Country: US (occurrence: US)
  Receive Date: 20080314
  Receipt Date: 20150803
  Transmission Date: 20151125
  Serious: Yes (Other)
  Sender: FDA-Public Use
  Company Number: US-GILEAD-2008-0015580

PATIENT
  Age: 70 Year
  Sex: Female
  Weight: 64.86 kg

DRUGS (12)
  1. K-DUR [Concomitant]
     Active Substance: POTASSIUM CHLORIDE
     Route: 048
  2. SYNTHROID [Concomitant]
     Active Substance: LEVOTHYROXINE SODIUM
     Route: 048
  3. CALTRATE [Concomitant]
     Active Substance: CALCIUM CARBONATE
     Route: 048
  4. LETAIRIS [Suspect]
     Active Substance: AMBRISENTAN
     Indication: COR PULMONALE CHRONIC
     Route: 048
     Dates: start: 20070830
  5. DEMADEX [Concomitant]
     Active Substance: TORSEMIDE
     Route: 048
  6. VENTAVIS [Concomitant]
     Active Substance: ILOPROST
     Route: 055
  7. AROMASIN [Concomitant]
     Active Substance: EXEMESTANE
     Route: 048
  8. REVATIO [Concomitant]
     Active Substance: SILDENAFIL CITRATE
     Route: 048
  9. ATIVAN [Concomitant]
     Active Substance: LORAZEPAM
     Route: 048
  10. COUMADIN [Concomitant]
     Active Substance: WARFARIN SODIUM
     Route: 048
  11. BL GARLIC [Concomitant]
     Route: 048
  12. TRIAMTERENE AND HYDROCHLOROTHIAZIDE [Concomitant]
     Active Substance: HYDROCHLOROTHIAZIDE\TRIAMTERENE
     Route: 048

REACTIONS (1)
  - Liver function test abnormal [None]
